FAERS Safety Report 24597463 (Version 1)
Quarter: 2024Q4

REPORT INFORMATION
  Report Type: Spontaneous
  Country: US (occurrence: US)
  Receive Date: 20241110
  Receipt Date: 20241110
  Transmission Date: 20250115
  Serious: No
  Sender: AVEVA DRUG DELIVERY SYSTEMS INC.
  Company Number: US-AVEVA-000754

PATIENT
  Sex: Male

DRUGS (1)
  1. NICOTINE [Suspect]
     Active Substance: NICOTINE
     Indication: Product used for unknown indication
     Dosage: 1 DOSAGE FORM OD 14 MILLIGRAM
     Route: 062
     Dates: start: 202409

REACTIONS (3)
  - Fatigue [Unknown]
  - Somnolence [Unknown]
  - Somnolence [Unknown]

NARRATIVE: CASE EVENT DATE: 20240901
